FAERS Safety Report 9201515 (Version 3)
Quarter: 2013Q3

REPORT INFORMATION
  Report Type: Spontaneous
  Country: US (occurrence: US)
  Receive Date: 20130401
  Receipt Date: 20130722
  Transmission Date: 20140515
  Serious: Yes (Death, Hospitalization)
  Sender: FDA-Public Use
  Company Number: US-PFIZER INC-2013099207

PATIENT
  Age: 54 Year
  Sex: Female

DRUGS (9)
  1. AROMASIN [Suspect]
     Indication: BREAST CANCER
     Dosage: 25 MG, 1X/DAY
     Route: 048
     Dates: start: 201004, end: 20130308
  2. AROMASIN [Suspect]
     Indication: OESTROGEN RECEPTOR POSITIVE BREAST CANCER
     Dosage: 25 MG, 1X/DAY
     Route: 048
     Dates: start: 20110329
  3. FLEXERIL [Concomitant]
     Dosage: 10 MG, 1X/DAY
     Route: 048
  4. NORCO [Concomitant]
     Dosage: UNK, PRN
  5. LEVOTHYROXINE [Concomitant]
     Dosage: 150 UG, 1X/DAY
  6. ZOFRAN [Concomitant]
     Dosage: UNK, PRN
     Route: 048
  7. PHENERGAN [Concomitant]
     Dosage: UNK, PRN
     Route: 048
  8. GEMZAR [Concomitant]
     Indication: BREAST CANCER
     Dosage: 1860 MG, (DAYS 1,8,15, EVERY 28 DAYS)UNK
     Route: 042
     Dates: start: 20130121, end: 20130218
  9. XGEVA [Concomitant]
     Indication: METASTASES TO BONE
     Dosage: 120 MG, Q 4 WK
     Route: 058
     Dates: start: 20130121, end: 20130218

REACTIONS (2)
  - Disease progression [Fatal]
  - Breast cancer [Fatal]
